FAERS Safety Report 23455228 (Version 1)
Quarter: 2024Q1

REPORT INFORMATION
  Report Type: Report from Study
  Country: US (occurrence: None)
  Receive Date: 20240130
  Receipt Date: 20240130
  Transmission Date: 20240410
  Serious: Yes (Life-Threatening, Other)
  Sender: FDA-Public Use
  Company Number: 2024A021255

PATIENT
  Sex: Female

DRUGS (1)
  1. FARXIGA [Suspect]
     Active Substance: DAPAGLIFLOZIN PROPANEDIOL
     Route: 048

REACTIONS (7)
  - Coma [Unknown]
  - Acidosis [Unknown]
  - Hallucination [Unknown]
  - Muscle atrophy [Unknown]
  - Fall [Unknown]
  - COVID-19 [Unknown]
  - Movement disorder [Unknown]
